FAERS Safety Report 15413862 (Version 1)
Quarter: 2018Q3

REPORT INFORMATION
  Report Type: Spontaneous
  Country: JP (occurrence: JP)
  Receive Date: 20180921
  Receipt Date: 20180921
  Transmission Date: 20181010
  Serious: Yes (Death)
  Sender: FDA-Public Use
  Company Number: PHJP2018JP007419

PATIENT
  Age: 54 Year
  Sex: Male

DRUGS (1)
  1. ILARIS [Suspect]
     Active Substance: CANAKINUMAB
     Indication: FAMILIAL MEDITERRANEAN FEVER
     Dosage: UNK MG, UNK
     Route: 058
     Dates: start: 20171222

REACTIONS (3)
  - Disease progression [Fatal]
  - Familial mediterranean fever [Fatal]
  - Arthralgia [Recovered/Resolved]

NARRATIVE: CASE EVENT DATE: 201803
